FAERS Safety Report 8695187 (Version 2)
Quarter: 2013Q4

REPORT INFORMATION
  Report Type: Spontaneous
  Country: US (occurrence: US)
  Receive Date: 20120731
  Receipt Date: 20131108
  Transmission Date: 20140711
  Serious: Yes (Hospitalization, Other)
  Sender: FDA-Public Use
  Company Number: US-009507513-1207USA009775

PATIENT
  Age: 56 Year
  Sex: Male

DRUGS (7)
  1. ZOCOR [Suspect]
     Dosage: UNK
     Route: 048
  2. PREDNISOLONE [Suspect]
     Dosage: UNK
     Route: 048
  3. PRILOSEC [Concomitant]
     Route: 048
  4. FOLIC ACID [Concomitant]
  5. CYANOCOBALAMIN [Concomitant]
  6. AMOXICILLIN [Concomitant]
  7. SALBUTAMOL [Concomitant]
     Dosage: UNK, PRN
     Route: 055

REACTIONS (6)
  - Renal failure acute [Unknown]
  - Rhabdomyolysis [Unknown]
  - Hypertension [Unknown]
  - Tachycardia [Unknown]
  - Hyperkalaemia [Unknown]
  - Urine output decreased [Unknown]
